FAERS Safety Report 4544233-2 (Version None)
Quarter: 2004Q4

REPORT INFORMATION
  Report Type: 
  Country: None (occurrence: None)
  Receive Date: 20041230
  Receipt Date: 20041217
  Transmission Date: 20050328
  Serious: Yes (Other)
  Sender: FDA-Public Use
  Company Number: 2004116646

PATIENT
  Age: 66 Year
  Sex: Female
  Weight: 58.514 kg

DRUGS (3)
  1. CELEBREX [Suspect]
     Indication: ROAD TRAFFIC ACCIDENT
     Dosage: 200 MG, (200 MG, 1 IN 1 D), ORAL
     Route: 048
     Dates: start: 20040101
  2. CONJUGATED ESTROGENS [Concomitant]
  3. VITAMINS NOS (VITAMINS NOS) [Concomitant]

REACTIONS (1)
  - MYOCARDIAL INFARCTION [None]
